FAERS Safety Report 13167684 (Version 11)
Quarter: 2018Q1

REPORT INFORMATION
  Report Type: Spontaneous
  Country: US (occurrence: US)
  Receive Date: 20170131
  Receipt Date: 20180125
  Transmission Date: 20180508
  Serious: Yes (Hospitalization, Other)
  Sender: FDA-Public Use
  Company Number: US-PFIZER INC-2017038373

PATIENT
  Age: 63 Year
  Sex: Male
  Weight: 134 kg

DRUGS (5)
  1. GENOTROPIN [Suspect]
     Active Substance: SOMATROPIN
     Indication: HYPOPITUITARISM
     Dosage: 0.6 MG, DAILY
     Dates: start: 20060329
  2. GENOTROPIN [Suspect]
     Active Substance: SOMATROPIN
     Dosage: 0.8 MG, DAILY
     Route: 058
     Dates: start: 20060622
  3. SYNTHROID [Concomitant]
     Active Substance: LEVOTHYROXINE SODIUM
     Indication: THYROID DISORDER
     Dosage: 75 UG, 1X/DAY
     Dates: start: 2014
  4. GENOTROPIN [Suspect]
     Active Substance: SOMATROPIN
     Indication: GROWTH HORMONE DEFICIENCY
     Dosage: UNKNOWN DOSAGE, 12MG CARTRIDGE
     Dates: start: 201605
  5. SYNTHROID [Concomitant]
     Active Substance: LEVOTHYROXINE SODIUM
     Dosage: 150 UG, 1X/DAY

REACTIONS (5)
  - Spinal column injury [Recovering/Resolving]
  - Hypoaesthesia [Recovered/Resolved]
  - Gout [Recovered/Resolved]
  - Spinal cord compression [Unknown]
  - Post procedural infection [Unknown]

NARRATIVE: CASE EVENT DATE: 201701
